FAERS Safety Report 9624281 (Version 1)
Quarter: 2013Q4

REPORT INFORMATION
  Report Type: Spontaneous
  Country: US (occurrence: US)
  Receive Date: 20131015
  Receipt Date: 20131015
  Transmission Date: 20140711
  Serious: Yes (Life-Threatening)
  Sender: FDA-Public Use
  Company Number: US-B.I. PHARMACEUTICALS,INC./RIDGEFIELD-2013-BI-32634BP

PATIENT
  Age: 7 Decade
  Sex: Female

DRUGS (2)
  1. PRADAXA [Suspect]
  2. ASPIRIN [Concomitant]

REACTIONS (1)
  - Cerebrovascular accident [Recovered/Resolved]
